FAERS Safety Report 20920713 (Version 1)
Quarter: 2022Q2

REPORT INFORMATION
  Report Type: Spontaneous
  Country: JP (occurrence: JP)
  Receive Date: 20220606
  Receipt Date: 20220606
  Transmission Date: 20220720
  Serious: Yes (Other)
  Sender: FDA-Public Use
  Company Number: JP-PFIZER INC-202200785597

PATIENT

DRUGS (2)
  1. INLYTA [Suspect]
     Active Substance: AXITINIB
     Indication: Renal cell carcinoma
     Dosage: UNK
  2. BAVENCIO [Concomitant]
     Active Substance: AVELUMAB
     Indication: Renal cell carcinoma
     Dosage: UNK

REACTIONS (2)
  - Hepatitis [Unknown]
  - Hepatic function abnormal [Unknown]
